FAERS Safety Report 13833072 (Version 5)
Quarter: 2021Q1

REPORT INFORMATION
  Report Type: Spontaneous
  Country: US (occurrence: US)
  Receive Date: 20170803
  Receipt Date: 20210222
  Transmission Date: 20210419
  Serious: No
  Sender: FDA-Public Use
  Company Number: US-PFIZER INC-2017336371

PATIENT
  Age: 74 Year
  Sex: Female

DRUGS (1)
  1. XELJANZ [Suspect]
     Active Substance: TOFACITINIB CITRATE
     Dosage: 5 MG, 2X/DAY

REACTIONS (12)
  - Joint stiffness [Unknown]
  - Foot deformity [Unknown]
  - Joint noise [Unknown]
  - Pigmentation disorder [Unknown]
  - Arthralgia [Unknown]
  - Pain in extremity [Unknown]
  - Aptyalism [Unknown]
  - Blood pressure increased [Unknown]
  - Joint swelling [Unknown]
  - Hand deformity [Unknown]
  - Gait disturbance [Unknown]
  - Skin mass [Unknown]
